FAERS Safety Report 24803432 (Version 1)
Quarter: 2025Q1

REPORT INFORMATION
  Report Type: Report from Study
  Country: US (occurrence: US)
  Receive Date: 20250103
  Receipt Date: 20250103
  Transmission Date: 20250409
  Serious: Yes (Disabling, Other)
  Sender: GILEAD
  Company Number: US-GILEAD-2024-0698348

PATIENT
  Age: 57 Year
  Sex: Female

DRUGS (2)
  1. LEDIPASVIR\SOFOSBUVIR [Suspect]
     Active Substance: LEDIPASVIR\SOFOSBUVIR
     Indication: Hepatitis C
     Route: 065
     Dates: end: 2012
  2. PROGRAF [Concomitant]
     Active Substance: TACROLIMUS

REACTIONS (9)
  - Blindness [Not Recovered/Not Resolved]
  - Renal haemorrhage [Unknown]
  - Renal embolism [Unknown]
  - Hepatitis [Unknown]
  - Abdominal discomfort [Unknown]
  - Headache [Unknown]
  - Rash macular [Unknown]
  - Abdominal pain upper [Unknown]
  - Illness [Unknown]

NARRATIVE: CASE EVENT DATE: 20120401
